FAERS Safety Report 8723080 (Version 3)
Quarter: 2012Q4

REPORT INFORMATION
  Report Type: 
  Country: US (occurrence: US)
  Receive Date: 20120814
  Receipt Date: 20121004
  Transmission Date: 20130627
  Serious: No
  Sender: FDA-Public Use
  Company Number: GB-ASTRAZENECA-2012SE54400

PATIENT
  Age: 72 Year
  Sex: Female
  Weight: 64.4 kg

DRUGS (9)
  1. SYMBICORT [Suspect]
     Indication: EMPHYSEMA
     Dosage: 160/4.5 MCG, 2 INHALATION, TWO TIMES A DAY
     Route: 055
  2. SYMBICORT [Suspect]
     Indication: CHRONIC OBSTRUCTIVE PULMONARY DISEASE
     Dosage: 160/4.5 MCG, 2 INHALATION, TWO TIMES A DAY
     Route: 055
  3. LISINOPRIL [Suspect]
     Route: 048
  4. ARMOUR THYROID [Concomitant]
  5. PLAVIX [Concomitant]
     Indication: STENT PLACEMENT
  6. PLAVIX [Concomitant]
     Indication: ANTICOAGULANT THERAPY
  7. VENTOLIN INHALER [Concomitant]
  8. ALBUTEROL [Concomitant]
  9. ASPIRIN [Concomitant]

REACTIONS (2)
  - Body height decreased [Unknown]
  - Osteoarthritis [Unknown]
